FAERS Safety Report 4379959-7 (Version None)
Quarter: 2004Q2

REPORT INFORMATION
  Report Type: 
  Country: None (occurrence: None)
  Receive Date: 20040614
  Receipt Date: 20040602
  Transmission Date: 20050107
  Serious: Yes (Hospitalization)
  Sender: FDA-Public Use
  Company Number: 04P-056-0254514-00

PATIENT
  Age: 69 Year
  Sex: Female

DRUGS (9)
  1. TRICOR [Suspect]
     Indication: HYPERCHOLESTEROLAEMIA
     Dosage: 1 IN 1 D, ORAL
     Route: 048
     Dates: start: 20040304, end: 20040304
  2. BACTRIM [Suspect]
     Indication: KLEBSIELLA INFECTION
     Dates: start: 20040323, end: 20040323
  3. BACTRIM [Suspect]
     Indication: URINARY TRACT INFECTION
     Dates: start: 20040323, end: 20040323
  4. CO-DIOVAN [Concomitant]
  5. NIF-TEN ^IMPERIAL^ [Concomitant]
  6. ALDACTAZINE [Concomitant]
  7. LEKOVIT CA [Concomitant]
  8. KETOTIFEN FUMARATE [Concomitant]
  9. TROXERUTIN [Concomitant]

REACTIONS (13)
  - CHILLS [None]
  - DERMATITIS EXFOLIATIVE [None]
  - EXANTHEM [None]
  - HYPERSENSITIVITY [None]
  - IMMUNE SYSTEM DISORDER [None]
  - KLEBSIELLA INFECTION [None]
  - PHOTOSENSITIVITY REACTION [None]
  - PRURITUS GENERALISED [None]
  - RASH GENERALISED [None]
  - STAPHYLOCOCCAL INFECTION [None]
  - STREPTOCOCCAL INFECTION [None]
  - TOXIC EPIDERMAL NECROLYSIS [None]
  - URINARY TRACT INFECTION [None]
